FAERS Safety Report 13407900 (Version 1)
Quarter: 2017Q2

REPORT INFORMATION
  Report Type: Spontaneous
  Country: US (occurrence: US)
  Receive Date: 20170406
  Receipt Date: 20170406
  Transmission Date: 20170830
  Serious: No
  Sender: FDA-Public Use
  Company Number: US-GLENMARK PHARMACEUTICALS-2016GMK025300

PATIENT

DRUGS (2)
  1. LEVOCETIRIZINE TABLETS [Suspect]
     Active Substance: LEVOCETIRIZINE
     Dosage: 2 DF, BID (MORNING AND NIGHT)
     Route: 065
  2. LEVOCETIRIZINE TABLETS [Suspect]
     Active Substance: LEVOCETIRIZINE
     Indication: CHRONIC SPONTANEOUS URTICARIA
     Dosage: 1 DF, BID (1 TABLET IN MORNING AND 1 TABLET IN NIGHT)
     Route: 065

REACTIONS (1)
  - Incorrect dose administered [Unknown]
